FAERS Safety Report 19631997 (Version 1)
Quarter: 2021Q3

REPORT INFORMATION
  Report Type: Report from Study
  Country: RU (occurrence: RU)
  Receive Date: 20210729
  Receipt Date: 20210729
  Transmission Date: 20211014
  Serious: Yes (Other)
  Sender: FDA-Public Use
  Company Number: RU-ASTRAZENECA-2021A643657

PATIENT
  Age: 24852 Day
  Sex: Male
  Weight: 70 kg

DRUGS (7)
  1. PRESTARIUM [Concomitant]
     Active Substance: PERINDOPRIL
     Dates: start: 20201012
  2. ATORVASTATIN [Concomitant]
     Active Substance: ATORVASTATIN
     Dates: start: 20201012
  3. NOLPAZA [Concomitant]
     Active Substance: PANTOPRAZOLE SODIUM
     Dates: start: 20201012
  4. DEPRENORM [Concomitant]
     Dates: start: 20201012
  5. BRILINTA [Suspect]
     Active Substance: TICAGRELOR
     Indication: INFARCTION
     Route: 048
     Dates: start: 20201012
  6. ASPIKARD [Concomitant]
     Dates: start: 20201012
  7. PREDUCTAL [Concomitant]
     Active Substance: TRIMETAZIDINE DIHYDROCHLORIDE
     Dates: start: 20201012

REACTIONS (3)
  - Shunt occlusion [Unknown]
  - Arrhythmia [Recovered/Resolved]
  - Abdominal discomfort [Not Recovered/Not Resolved]

NARRATIVE: CASE EVENT DATE: 20210721
